FAERS Safety Report 12233122 (Version 1)
Quarter: 2016Q2

REPORT INFORMATION
  Report Type: Spontaneous
  Country: US (occurrence: US)
  Receive Date: 20160404
  Receipt Date: 20160404
  Transmission Date: 20160815
  Serious: No
  Sender: FDA-Public Use
  Company Number: US-AMGEN-USASP2016039054

PATIENT
  Age: 38 Year
  Sex: Female

DRUGS (7)
  1. ENBREL [Suspect]
     Active Substance: ETANERCEPT
     Indication: RHEUMATOID ARTHRITIS
     Dosage: 50 MG/ML, QWK
     Route: 058
  2. VITAMIN C [Concomitant]
     Active Substance: ASCORBIC ACID
     Dosage: UNK
  3. METHOTREXATE [Concomitant]
     Active Substance: METHOTREXATE
     Dosage: UNK
  4. TRAMADOL HCL [Concomitant]
     Active Substance: TRAMADOL HYDROCHLORIDE
     Dosage: UNK
  5. RITALIN [Concomitant]
     Active Substance: METHYLPHENIDATE HYDROCHLORIDE
     Dosage: UNK
  6. VITAMIN D3 [Concomitant]
     Active Substance: CHOLECALCIFEROL
     Dosage: UNK
  7. KELP                               /00082201/ [Concomitant]
     Active Substance: IODINE
     Dosage: UNK

REACTIONS (9)
  - Condition aggravated [Unknown]
  - Gait disturbance [Unknown]
  - Disturbance in attention [Unknown]
  - Pain [Unknown]
  - Menstruation irregular [Unknown]
  - Increased tendency to bruise [Unknown]
  - Heart rate increased [Unknown]
  - Depression [Unknown]
  - Injection site reaction [Recovered/Resolved]
